FAERS Safety Report 23619277 (Version 1)
Quarter: 2024Q1

REPORT INFORMATION
  Report Type: Other
  Country: TH (occurrence: TH)
  Receive Date: 20240311
  Receipt Date: 20240311
  Transmission Date: 20240410
  Serious: Yes (Hospitalization)
  Sender: FDA-Public Use
  Company Number: TH-BoehringerIngelheim-2024-BI-012524

PATIENT
  Age: 83 Year
  Sex: Male

DRUGS (2)
  1. ALTEPLASE [Suspect]
     Active Substance: ALTEPLASE
     Indication: Ischaemic stroke
     Route: 042
  2. HEPARIN [Concomitant]
     Active Substance: HEPARIN SODIUM

REACTIONS (6)
  - Spontaneous haematoma [Not Recovered/Not Resolved]
  - Spinal cord haematoma [Not Recovered/Not Resolved]
  - Subarachnoid haematoma [Not Recovered/Not Resolved]
  - Kyphosis [Unknown]
  - Subarachnoid haemorrhage [Unknown]
  - Intraventricular haemorrhage [Unknown]
